FAERS Safety Report 6680860-4 (Version None)
Quarter: 2010Q2

REPORT INFORMATION
  Report Type: 
  Country: None (occurrence: None)
  Receive Date: 20100412
  Receipt Date: 20100401
  Transmission Date: 20101027
  Serious: Yes (Hospitalization)
  Sender: FDA-Public Use
  Company Number: 97830

PATIENT
  Age: 40 Year
  Sex: Female

DRUGS (1)
  1. BUPRENORPHINE HCL [Suspect]
     Indication: DRUG DEPENDENCE

REACTIONS (6)
  - ANEURYSM [None]
  - DRUG ABUSE [None]
  - FOREIGN BODY [None]
  - LIVIDITY [None]
  - PANNICULITIS [None]
  - SKIN NECROSIS [None]
